FAERS Safety Report 9422498 (Version 1)
Quarter: 2013Q3

REPORT INFORMATION
  Report Type: Spontaneous
  Country: US (occurrence: None)
  Receive Date: 20130725
  Receipt Date: 20130725
  Transmission Date: 20140515
  Serious: No
  Sender: FDA-Public Use
  Company Number: None

PATIENT
  Age: 76 Year
  Sex: Female
  Weight: 72.58 kg

DRUGS (7)
  1. SORIATANE [Suspect]
     Indication: PSORIASIS
     Route: 048
     Dates: start: 20120806, end: 20121212
  2. ZIAC [Concomitant]
  3. ZOCOR [Concomitant]
  4. LISINIPRIL 5MG [Concomitant]
  5. GLYBURIDE [Concomitant]
  6. 81MG ASPIRIN [Concomitant]
  7. SENIOR VITAMIN [Concomitant]

REACTIONS (8)
  - Epistaxis [None]
  - Onychoclasis [None]
  - Alopecia [None]
  - Chapped lips [None]
  - Dry eye [None]
  - Skin exfoliation [None]
  - Lip pain [None]
  - Gingival bleeding [None]
